FAERS Safety Report 21169780 (Version 1)
Quarter: 2022Q3

REPORT INFORMATION
  Report Type: Spontaneous
  Country: GB (occurrence: GB)
  Receive Date: 20220804
  Receipt Date: 20220804
  Transmission Date: 20221027
  Serious: Yes (Hospitalization, Other)
  Sender: FDA-Public Use
  Company Number: None

PATIENT
  Age: 51 Year
  Sex: Male
  Weight: 54.2 kg

DRUGS (13)
  1. PREGABALIN [Suspect]
     Active Substance: PREGABALIN
     Indication: Product used for unknown indication
     Dosage: 50 MILLIGRAM
     Route: 048
  2. AMITRIPTYLINE [Concomitant]
     Active Substance: AMITRIPTYLINE
     Indication: Product used for unknown indication
     Dosage: ONE AT NIGHT-INCREASING AT NIGHT AFTER 1 WEEK IF NEEDED.
     Route: 065
     Dates: start: 20220311
  3. ASPIRIN [Concomitant]
     Active Substance: ASPIRIN
     Indication: Product used for unknown indication
     Dosage: ONE AT NIGHT-INCREASING AT NIGHT AFTER 1 WEEK IF NEEDED.
     Route: 065
     Dates: start: 20220311
  4. CODEINE [Concomitant]
     Active Substance: CODEINE
     Indication: Product used for unknown indication
     Dosage: ONE OR TWO TABLETS TO BE TAKEN EVERY HOUR HOURS AS DIRECTED.
     Route: 065
     Dates: start: 20220311
  5. CODEINE [Concomitant]
     Active Substance: CODEINE
     Dosage: ONE OR TWO TABLETS TO BE TAKEN EVERY HOUR HOURS AS DIRECTED.
     Route: 065
     Dates: start: 20220426
  6. CODEINE [Concomitant]
     Active Substance: CODEINE
     Dosage: ONE OR TWO TABLETS TO BE TAKEN EVERY HOUR HOURS AS DIRECTED.
     Route: 065
     Dates: start: 20220516
  7. GABAPENTIN [Concomitant]
     Active Substance: GABAPENTIN
     Indication: Product used for unknown indication
     Dosage: 1 EVERY DAY FOR A WEEK-THEN 1 TWICE A DAY FOR A WEEK-THEN 1 THREE TIMES A DAY TO CONTINUE
     Route: 065
     Dates: start: 20220331
  8. LANSOPRAZOLE [Concomitant]
     Active Substance: LANSOPRAZOLE
     Indication: Product used for unknown indication
     Dosage: 1 DOSAGE FORM (TAKE ONE CAPSULE DAILY NOTES FOR  PATIENT: THIS IS THE SAME DOSE AS THE SACHETS IN A
     Route: 065
     Dates: start: 20220311
  9. NAPROXEN [Concomitant]
     Active Substance: NAPROXEN
     Indication: Product used for unknown indication
     Dosage: UNK DOSAGE FORM, BID (UNK (ONE OR TWO TO BE TAKEN TWICE A DAY WHEN REQUIRED-TAKE WITH FOOD)
     Route: 065
     Dates: start: 20220311
  10. NAPROXEN [Concomitant]
     Active Substance: NAPROXEN
     Dosage: UNK DOSAGE FORM, BID (UNK (ONE OR TWO TO BE TAKEN TWICE A DAY WHEN REQUIRED-TAKE WITH FOOD)
     Route: 065
     Dates: start: 20220426
  11. NAPROXEN [Concomitant]
     Active Substance: NAPROXEN
     Dosage: 2 DOSAGE FORM, BID (TWO TO BE TAKEN TWICE A DAY WHEN REQUIRED-TAKE WITH FOOD)
     Route: 065
     Dates: start: 20220516
  12. ACETAMINOPHEN [Concomitant]
     Active Substance: ACETAMINOPHEN
     Indication: Product used for unknown indication
     Dosage: UNK DOSAGE FORM (1 OR 2 TABLETS TO BE TAKEN 3 OR 4 TIMES A DAY)
     Route: 065
     Dates: start: 20220516
  13. THIAMINE [Concomitant]
     Active Substance: THIAMINE
     Indication: Product used for unknown indication
     Dosage: 1 DOSAGE FORM, BID (ONE TO BE TAKEN TWICE A DAY)
     Route: 065
     Dates: start: 20220311

REACTIONS (1)
  - Suicidal ideation [Recovered/Resolved]

NARRATIVE: CASE EVENT DATE: 20220509
